FAERS Safety Report 15260747 (Version 2)
Quarter: 2018Q3

REPORT INFORMATION
  Report Type: Spontaneous
  Country: US (occurrence: US)
  Receive Date: 20180809
  Receipt Date: 20180810
  Transmission Date: 20181010
  Serious: Yes (Other)
  Sender: FDA-Public Use
  Company Number: US-STRIDES ARCOLAB LIMITED-2018SP006621

PATIENT

DRUGS (3)
  1. TENOFOVIR DISOPROXIL FUMARATE. [Suspect]
     Active Substance: TENOFOVIR DISOPROXIL FUMARATE
     Indication: HIV TEST POSITIVE
     Dosage: UNK
     Route: 065
  2. DOLUTEGRAVIR [Suspect]
     Active Substance: DOLUTEGRAVIR
     Indication: HIV TEST POSITIVE
     Dosage: UNK
     Route: 065
  3. EMTRICITABINE [Suspect]
     Active Substance: EMTRICITABINE
     Indication: HIV TEST POSITIVE
     Dosage: UNK
     Route: 065

REACTIONS (6)
  - Hypercalcaemia [Unknown]
  - High-grade B-cell lymphoma [Unknown]
  - Tumour lysis syndrome [Unknown]
  - Mental status changes [Unknown]
  - Immune reconstitution inflammatory syndrome [Unknown]
  - Unmasking of previously unidentified disease [Unknown]
